FAERS Safety Report 25931418 (Version 1)
Quarter: 2025Q4

REPORT INFORMATION
  Report Type: Spontaneous
  Country: VN (occurrence: VN)
  Receive Date: 20251016
  Receipt Date: 20251016
  Transmission Date: 20260118
  Serious: Yes (Hospitalization)
  Sender: MYLAN
  Company Number: VN-MYLANLABS-2025M1086747

PATIENT
  Age: 31 Year
  Sex: Male

DRUGS (16)
  1. GABAPENTIN [Suspect]
     Active Substance: GABAPENTIN
     Indication: Intervertebral disc protrusion
     Dosage: UNK
  2. GABAPENTIN [Suspect]
     Active Substance: GABAPENTIN
     Indication: Spinal osteoarthritis
  3. ALENDRONATE [Suspect]
     Active Substance: ALENDRONATE SODIUM
     Indication: Osteoporosis
     Dosage: UNK
  4. ALENDRONATE [Suspect]
     Active Substance: ALENDRONATE SODIUM
     Indication: Hypophosphataemia
  5. ALENDRONATE [Suspect]
     Active Substance: ALENDRONATE SODIUM
     Indication: Intervertebral disc protrusion
  6. MELOXICAM [Suspect]
     Active Substance: MELOXICAM
     Indication: Intervertebral disc protrusion
     Dosage: UNK
  7. MELOXICAM [Suspect]
     Active Substance: MELOXICAM
     Indication: Spinal osteoarthritis
  8. CALCITRIOL [Suspect]
     Active Substance: CALCITRIOL
     Indication: Osteoporosis
     Dosage: 1 MICROGRAM, QD (1 MICROGRAM PER DAY)
  9. CALCITRIOL [Suspect]
     Active Substance: CALCITRIOL
     Indication: Hypophosphataemia
  10. CALCITRIOL [Suspect]
     Active Substance: CALCITRIOL
     Indication: Intervertebral disc protrusion
  11. SODIUM PHOSPHATE, DIBASIC\SODIUM PHOSPHATE, MONOBASIC [Suspect]
     Active Substance: SODIUM PHOSPHATE, DIBASIC\SODIUM PHOSPHATE, MONOBASIC
     Indication: Osteoporosis
     Dosage: 5.5 MILLILITER, 5XD
  12. SODIUM PHOSPHATE, DIBASIC\SODIUM PHOSPHATE, MONOBASIC [Suspect]
     Active Substance: SODIUM PHOSPHATE, DIBASIC\SODIUM PHOSPHATE, MONOBASIC
     Indication: Hypophosphataemia
  13. SODIUM PHOSPHATE, DIBASIC\SODIUM PHOSPHATE, MONOBASIC [Suspect]
     Active Substance: SODIUM PHOSPHATE, DIBASIC\SODIUM PHOSPHATE, MONOBASIC
     Indication: Intervertebral disc protrusion
  14. ULTRACET [Suspect]
     Active Substance: ACETAMINOPHEN\TRAMADOL HYDROCHLORIDE
     Indication: Osteoporosis
     Dosage: 2 DOSAGE FORM, QD (2 TABLETS/DAY)
  15. ULTRACET [Suspect]
     Active Substance: ACETAMINOPHEN\TRAMADOL HYDROCHLORIDE
     Indication: Hypophosphataemia
  16. ULTRACET [Suspect]
     Active Substance: ACETAMINOPHEN\TRAMADOL HYDROCHLORIDE
     Indication: Intervertebral disc protrusion

REACTIONS (1)
  - Drug ineffective [Unknown]
